FAERS Safety Report 5454598-5 (Version None)
Quarter: 2007Q3

REPORT INFORMATION
  Report Type: 
  Country: None (occurrence: None)
  Receive Date: 20070917
  Receipt Date: 20070907
  Transmission Date: 20080115
  Serious: Yes (Other)
  Sender: FDA-Public Use
  Company Number: GB-PFIZER INC-2007068728

PATIENT
  Sex: Male
  Weight: 46 kg

DRUGS (5)
  1. LIPITOR [Suspect]
     Indication: MYOCARDIAL INFARCTION
     Route: 048
  2. LISINOPRIL [Concomitant]
     Route: 048
  3. CARDICOR [Concomitant]
     Route: 048
  4. HYPOVASE [Concomitant]
     Route: 048
  5. WARFARIN SODIUM [Concomitant]
     Route: 048

REACTIONS (6)
  - BLOOD CREATINE PHOSPHOKINASE INCREASED [None]
  - BLOOD CREATININE INCREASED [None]
  - DEEP VEIN THROMBOSIS [None]
  - MUSCLE FATIGUE [None]
  - MYALGIA [None]
  - WALKING DISABILITY [None]
